FAERS Safety Report 13045866 (Version 2)
Quarter: 2016Q4

REPORT INFORMATION
  Report Type: Spontaneous
  Country: AR (occurrence: AR)
  Receive Date: 20161220
  Receipt Date: 20161229
  Transmission Date: 20170207
  Serious: Yes (Death, Other)
  Sender: FDA-Public Use
  Company Number: AR-BAYER-2016-237189

PATIENT
  Age: 49 Year
  Sex: Male

DRUGS (3)
  1. REGORAFENIB [Suspect]
     Active Substance: REGORAFENIB
     Indication: COLORECTAL CANCER
     Dosage: 160 MG, QD
     Dates: start: 20141022
  2. REGORAFENIB [Suspect]
     Active Substance: REGORAFENIB
     Indication: COLORECTAL CANCER
     Dosage: 120 MG, QD
     Dates: start: 20141217
  3. REGORAFENIB [Suspect]
     Active Substance: REGORAFENIB
     Indication: COLORECTAL CANCER
     Dosage: 120 MG, QD
     Dates: start: 20141119

REACTIONS (10)
  - Blood bilirubin increased [Unknown]
  - Tumour marker increased [Unknown]
  - Weight decreased [Not Recovered/Not Resolved]
  - Palmar-plantar erythrodysaesthesia syndrome [Not Recovered/Not Resolved]
  - Metastases to liver [Fatal]
  - Carcinoembryonic antigen increased [Unknown]
  - Colorectal cancer stage IV [Fatal]
  - Metastases to lung [Fatal]
  - Fatigue [Not Recovered/Not Resolved]
  - Transaminases increased [Not Recovered/Not Resolved]

NARRATIVE: CASE EVENT DATE: 201501
